FAERS Safety Report 8021491-3 (Version None)
Quarter: 2011Q4

REPORT INFORMATION
  Report Type: 
  Country: None (occurrence: None)
  Receive Date: 20111230
  Receipt Date: 20111230
  Transmission Date: 20120403
  Serious: Yes (Hospitalization)
  Sender: FDA-Public Use
  Company Number: None

PATIENT
  Age: 83 Year
  Sex: Male
  Weight: 77.3 kg

DRUGS (9)
  1. EVEROLIMUS (RADC01) 5 MG NOVARTIS PHARMACEUTICALS [Suspect]
     Indication: PROSTATE CANCER
     Dosage: 5 MG DAILY ORAL
     Route: 048
     Dates: start: 20111128, end: 20111224
  2. PRAVASTATIN [Concomitant]
  3. VICODIN [Concomitant]
  4. ATENOLOL [Concomitant]
  5. AUGMENTIN '125' [Concomitant]
  6. POTASSIUM CHOLORIDE (K-TAB) [Concomitant]
  7. ASPIRIN [Concomitant]
  8. SPIRONOLACTONE [Concomitant]
  9. VITAMIN D [Concomitant]

REACTIONS (1)
  - DRUG ERUPTION [None]
